FAERS Safety Report 4538312-3 (Version None)
Quarter: 2004Q4

REPORT INFORMATION
  Report Type: 
  Country: None (occurrence: None)
  Receive Date: 20041221
  Receipt Date: 20041213
  Transmission Date: 20050328
  Serious: Yes (Hospitalization)
  Sender: FDA-Public Use
  Company Number: US-JNJFOC-20041103290

PATIENT
  Age: 74 Year
  Sex: Female

DRUGS (6)
  1. IBUPROFEN [Suspect]
     Indication: PAIN
     Dosage: 600 MG, 3 IN 1 DAY
     Dates: start: 20011101, end: 20031101
  2. AVAPRO [Concomitant]
  3. PHENTOIN (PHENTOIN) [Concomitant]
  4. AMITRIPTYLINE (AMITRIPYTLINE) [Concomitant]
  5. ACTONEL [Concomitant]
  6. HYDROCHLOROTHIAZIDE [Concomitant]

REACTIONS (1)
  - CEREBRAL HAEMORRHAGE [None]
